FAERS Safety Report 12996577 (Version 1)
Quarter: 2016Q4

REPORT INFORMATION
  Report Type: Spontaneous
  Country: IT (occurrence: IT)
  Receive Date: 20161204
  Receipt Date: 20161204
  Transmission Date: 20170207
  Serious: Yes (Death, Other)
  Sender: FDA-Public Use
  Company Number: IT-GLAXOSMITHKLINE-IT2016GSK174704

PATIENT
  Age: 35 Year
  Sex: Female

DRUGS (8)
  1. TRAMADOL. [Suspect]
     Active Substance: TRAMADOL
     Indication: HOMICIDE
  2. PREGABALIN. [Suspect]
     Active Substance: PREGABALIN
     Indication: COMPLETED SUICIDE
  3. O-DESMETHYLVENLAFAXINE [Suspect]
     Active Substance: DESVENLAFAXINE
     Indication: COMPLETED SUICIDE
  4. ZOLPIDEM [Suspect]
     Active Substance: ZOLPIDEM\ZOLPIDEM TARTRATE
     Indication: COMPLETED SUICIDE
  5. LAMOTRIGINE. [Suspect]
     Active Substance: LAMOTRIGINE
     Indication: COMPLETED SUICIDE
     Dosage: 100 MG, 2 BLISTERS CONTAINING 10 TABLETS EACH
  6. DIPHENHYDRAMINE. [Suspect]
     Active Substance: DIPHENHYDRAMINE
     Indication: COMPLETED SUICIDE
  7. MODAFINIL. [Suspect]
     Active Substance: MODAFINIL
     Indication: COMPLETED SUICIDE
  8. ZOPICLONE [Suspect]
     Active Substance: ZOPICLONE
     Indication: COMPLETED SUICIDE

REACTIONS (5)
  - Hypersensitivity vasculitis [Fatal]
  - Haemorrhage subcutaneous [Fatal]
  - Drug abuse [Fatal]
  - Toxicity to various agents [Fatal]
  - Completed suicide [Fatal]
